FAERS Safety Report 7882039-7 (Version None)
Quarter: 2011Q4

REPORT INFORMATION
  Report Type: 
  Country: None (occurrence: None)
  Receive Date: 20111101
  Receipt Date: 20110607
  Transmission Date: 20120403
  Serious: No
  Sender: FDA-Public Use
  Company Number: US-AMGEN-USASP2011029393

PATIENT
  Age: 24 Year
  Sex: Female
  Weight: 60.771 kg

DRUGS (5)
  1. ZINC [Concomitant]
     Dosage: 30 MG, UNK
  2. ALPHA LIPOIC ACID [Concomitant]
  3. MULTIVITAMIN                       /00097801/ [Concomitant]
  4. ENBREL [Suspect]
     Dosage: 50 MG, QWK
  5. GRAPE SEED                         /01364603/ [Concomitant]
     Dosage: 25 MG, UNK

REACTIONS (3)
  - INJECTION SITE PRURITUS [None]
  - INJECTION SITE ERYTHEMA [None]
  - URTICARIA [None]
